FAERS Safety Report 17044515 (Version 1)
Quarter: 2019Q4

REPORT INFORMATION
  Report Type: Spontaneous
  Country: US (occurrence: US)
  Receive Date: 20191018
  Receipt Date: 20191018
  Transmission Date: 20200122
  Serious: No
  Sender: FDA-Public Use
  Company Number: None

PATIENT
  Age: 44 Year
  Sex: Male

DRUGS (1)
  1. CUPRIMINE [Suspect]
     Active Substance: PENICILLAMINE
     Dosage: ?          OTHER FREQUENCY:QID;?
     Route: 048
     Dates: start: 2018

REACTIONS (2)
  - Product substitution issue [None]
  - Abdominal distension [None]

NARRATIVE: CASE EVENT DATE: 20190926
